FAERS Safety Report 8119148 (Version 4)
Quarter: 2014Q2

REPORT INFORMATION
  Report Type: Spontaneous
  Country: US (occurrence: US)
  Receive Date: 20110902
  Receipt Date: 20140627
  Transmission Date: 20141212
  Serious: Yes (Hospitalization, Other)
  Sender: FDA-Public Use
  Company Number: US-GLAXOSMITHKLINE-A0943046A

PATIENT
  Sex: Male
  Weight: 102.3 kg

DRUGS (1)
  1. AVANDIA [Suspect]
     Indication: DIABETES MELLITUS
     Dosage: 4MG PER DAY
     Route: 048
     Dates: start: 2003, end: 2006

REACTIONS (5)
  - Angina unstable [Not Recovered/Not Resolved]
  - Myocardial infarction [Unknown]
  - Implantable defibrillator insertion [Unknown]
  - Coronary artery disease [Unknown]
  - Coronary artery bypass [Unknown]
